FAERS Safety Report 25831152 (Version 1)
Quarter: 2025Q3

REPORT INFORMATION
  Report Type: Spontaneous
  Country: US (occurrence: US)
  Receive Date: 20250922
  Receipt Date: 20250922
  Transmission Date: 20251020
  Serious: No
  Sender: MYLAN
  Company Number: US-MYLANLABS-2025M1078037

PATIENT
  Sex: Female

DRUGS (8)
  1. CITALOPRAM [Suspect]
     Active Substance: CITALOPRAM
     Indication: Product used for unknown indication
  2. CITALOPRAM [Suspect]
     Active Substance: CITALOPRAM
     Route: 065
  3. CITALOPRAM [Suspect]
     Active Substance: CITALOPRAM
     Route: 065
  4. CITALOPRAM [Suspect]
     Active Substance: CITALOPRAM
  5. CITALOPRAM [Suspect]
     Active Substance: CITALOPRAM
     Indication: Product used for unknown indication
  6. CITALOPRAM [Suspect]
     Active Substance: CITALOPRAM
     Route: 065
  7. CITALOPRAM [Suspect]
     Active Substance: CITALOPRAM
     Route: 065
  8. CITALOPRAM [Suspect]
     Active Substance: CITALOPRAM

REACTIONS (2)
  - Adverse drug reaction [Unknown]
  - Drug ineffective [Unknown]
